FAERS Safety Report 9257171 (Version 1)
Quarter: 2013Q1

REPORT INFORMATION
  Report Type: Spontaneous
  Country: US (occurrence: None)
  Receive Date: 20121212
  Receipt Date: 20121212
  Transmission Date: 20140127
  Serious: No
  Sender: FDA-Public Use
  Company Number: 1210USA000373

PATIENT
  Age: 63 Year
  Sex: Female

DRUGS (2)
  1. VICTRELIS [Suspect]
     Indication: HEPATITIS C
     Dosage: 800 MG, TID, ORAL
     Route: 048
     Dates: start: 20120220
  2. PEG-INTRON [Suspect]
     Dosage: 108 MCG, QW, SUBCUTANEOUS
     Route: 058

REACTIONS (2)
  - Memory impairment [None]
  - Insomnia [None]
